FAERS Safety Report 8886898 (Version 1)
Quarter: 2012Q4

REPORT INFORMATION
  Report Type: 
  Country: CH (occurrence: CH)
  Receive Date: 20121105
  Receipt Date: 20121105
  Transmission Date: 20130627
  Serious: Yes (Hospitalization)
  Sender: FDA-Public Use
  Company Number: CH-PFIZER INC-2012271635

PATIENT
  Age: 56 Year
  Sex: Male
  Weight: 75 kg

DRUGS (20)
  1. VFEND [Suspect]
     Indication: ASPERGILLOSIS
     Dosage: 400 mg, 1x/day
     Route: 042
     Dates: start: 20120704, end: 20120705
  2. VFEND [Interacting]
     Indication: ASPERGILLOSIS
     Dosage: 400 mg, 2x/day
     Route: 048
     Dates: start: 20120810, end: 20121016
  3. VFEND [Interacting]
     Dosage: 300 mg, 2x/day
     Route: 048
     Dates: start: 20120803, end: 20120809
  4. VFEND [Interacting]
     Dosage: 200 mg, 2x/day
     Route: 048
     Dates: start: 20120706, end: 20120802
  5. MOVICOL [Interacting]
     Dosage: 1 DF, 1x/day
     Route: 048
     Dates: start: 201207
  6. FRESUBIN [Interacting]
     Dosage: 1 DF, 3x/day
     Route: 048
     Dates: start: 201207
  7. TRACLEER [Interacting]
     Dosage: 125 mg, 2x/day
     Route: 048
     Dates: start: 2012
  8. NOVALGIN [Interacting]
     Dosage: 20 Gtt, 3x/day
     Route: 048
     Dates: start: 201207
  9. MARCOUMAR [Concomitant]
     Dosage: 3 mg, as needed
     Route: 048
     Dates: start: 2010
  10. FRAGMIN [Concomitant]
     Dosage: 15000 IU, UNK
     Route: 058
     Dates: start: 2012
  11. DOSPIR [Concomitant]
     Dosage: 1 DF, 4x/day
     Route: 045
     Dates: start: 201207
  12. SPIRIVA [Concomitant]
     Dosage: 18 ug, 1x/day
     Route: 055
     Dates: start: 2012
  13. SERETIDE [Concomitant]
     Dosage: 1 DF, 2x/day
     Route: 055
     Dates: start: 201012
  14. METOLAZONE [Concomitant]
     Dosage: 5 mg, daily
     Route: 048
     Dates: start: 201207
  15. WELLBUTRIN [Concomitant]
     Dosage: 150 mg, 2x/day
     Route: 048
     Dates: start: 2012
  16. REMERON [Concomitant]
     Dosage: 30 mg, daily
     Route: 048
     Dates: start: 2010
  17. STILNOX [Concomitant]
     Dosage: 10 mg, daily
     Route: 048
     Dates: start: 201207
  18. PANTOZOL [Concomitant]
     Dosage: 40 mg, daily
     Route: 048
     Dates: start: 201012
  19. PRADIF [Concomitant]
     Dosage: 400 ug, daily
     Route: 048
     Dates: start: 201207
  20. DAFALGAN [Concomitant]
     Dosage: 1 g, 2x/day
     Route: 048
     Dates: start: 201207

REACTIONS (2)
  - Drug level below therapeutic [Recovered/Resolved]
  - Drug interaction [Recovered/Resolved]
